FAERS Safety Report 14603798 (Version 8)
Quarter: 2024Q2

REPORT INFORMATION
  Report Type: Spontaneous
  Country: US (occurrence: US)
  Receive Date: 20180306
  Receipt Date: 20240510
  Transmission Date: 20240716
  Serious: Yes (Other)
  Sender: FDA-Public Use
  Company Number: US-PFIZER INC-2018087524

PATIENT
  Age: 39 Year
  Sex: Male

DRUGS (1)
  1. BENEFIX [Suspect]
     Active Substance: COAGULATION FACTOR IX RECOMBINANT HUMAN\ISOPROPYL ALCOHOL
     Indication: Haemorrhage
     Dosage: UNK, AS NEEDED, (BENEFIX 4.300 +/- 10% UNITS AS NEEDED FOR BLEEDING)

REACTIONS (3)
  - Haemorrhage [Unknown]
  - Injury [Recovered/Resolved]
  - Nervousness [Unknown]
